FAERS Safety Report 23759393 (Version 3)
Quarter: 2024Q3

REPORT INFORMATION
  Report Type: Report from Study
  Country: IT (occurrence: IT)
  Receive Date: 20240418
  Receipt Date: 20240818
  Transmission Date: 20241017
  Serious: Yes (Hospitalization, Other)
  Sender: JOHNSON AND JOHNSON
  Company Number: IT-JNJFOC-20240452784

PATIENT
  Age: 58 Year
  Weight: 54 kg

DRUGS (6)
  1. YONDELIS [Suspect]
     Active Substance: TRABECTEDIN
     Indication: Ovarian cancer recurrent
     Route: 042
     Dates: start: 20231113, end: 20240311
  2. DOXORUBICIN HYDROCHLORIDE [Suspect]
     Active Substance: DOXORUBICIN HYDROCHLORIDE
     Indication: Ovarian cancer recurrent
     Route: 042
     Dates: start: 20231113, end: 20240311
  3. OMEGA-3 FATTY ACIDS [Concomitant]
     Active Substance: OMEGA-3 FATTY ACIDS
     Indication: Hypercholesterolaemia
  4. INDERAL [Concomitant]
     Active Substance: PROPRANOLOL HYDROCHLORIDE
  5. ALENDRONATE SODIUM [Concomitant]
     Active Substance: ALENDRONATE SODIUM
     Indication: Osteoporosis
  6. ETIZOLAM [Concomitant]
     Active Substance: ETIZOLAM
     Indication: Anxiety

REACTIONS (2)
  - Pneumonia [Recovered/Resolved]
  - Anaemia [Recovered/Resolved]

NARRATIVE: CASE EVENT DATE: 20240321
